FAERS Safety Report 8483578-0 (Version None)
Quarter: 2012Q3

REPORT INFORMATION
  Report Type: 
  Country: None (occurrence: None)
  Receive Date: 20120702
  Receipt Date: 20120627
  Transmission Date: 20120928
  Serious: Yes (Disabling)
  Sender: FDA-Public Use
  Company Number: US-MERCK-1207USA00062

PATIENT
  Age: 58 Year
  Sex: Female

DRUGS (3)
  1. ALENDRONATE SODIUM [Suspect]
     Indication: OSTEOPOROSIS
     Route: 048
     Dates: start: 20100101, end: 20100101
  2. FOSAMAX [Suspect]
     Route: 048
     Dates: start: 20100101, end: 20110101
  3. FOSAMAX [Suspect]
     Indication: OSTEOPOROSIS
     Route: 048
     Dates: start: 20011201, end: 20090101

REACTIONS (3)
  - OSTEOPOROSIS [None]
  - BONE DENSITY DECREASED [None]
  - FEMUR FRACTURE [None]
